FAERS Safety Report 14321663 (Version 1)
Quarter: 2017Q4

REPORT INFORMATION
  Report Type: Spontaneous
  Country: ES (occurrence: ES)
  Receive Date: 20171224
  Receipt Date: 20171224
  Transmission Date: 20180321
  Serious: Yes (Other)
  Sender: FDA-Public Use
  Company Number: PHHY2017ES168117

PATIENT
  Sex: Male

DRUGS (1)
  1. COSENTYX [Suspect]
     Active Substance: SECUKINUMAB
     Indication: PSORIASIS
     Dosage: 300 MG, QMO
     Route: 065
     Dates: start: 20160322, end: 20171031

REACTIONS (2)
  - Urinary tract infection staphylococcal [Unknown]
  - Renal papillary necrosis [Not Recovered/Not Resolved]

NARRATIVE: CASE EVENT DATE: 201710
